FAERS Safety Report 9700781 (Version 1)
Quarter: 2013Q4

REPORT INFORMATION
  Report Type: Report from Study
  Country: MX (occurrence: MX)
  Receive Date: 20131121
  Receipt Date: 20131121
  Transmission Date: 20140711
  Serious: Yes (Death)
  Sender: FDA-Public Use
  Company Number: PHHY2013MX133021

PATIENT
  Age: 65 Year
  Sex: Female

DRUGS (1)
  1. EXFORGE HCT [Suspect]
     Dosage: (320 MG VALS, 10 MG AMLO AND 25 MG HYDR)
     Route: 048

REACTIONS (1)
  - Death [Fatal]
